FAERS Safety Report 10253061 (Version 2)
Quarter: 2014Q2

REPORT INFORMATION
  Report Type: Spontaneous
  Country: GB (occurrence: GB)
  Receive Date: 20140623
  Receipt Date: 20140625
  Transmission Date: 20141212
  Serious: Yes (Life-Threatening, Other)
  Sender: FDA-Public Use
  Company Number: GB-PFIZER INC-2014166878

PATIENT
  Age: 84 Year
  Sex: Female
  Weight: 60 kg

DRUGS (16)
  1. PHENYTOIN SODIUM [Suspect]
     Indication: CONVULSION
     Dosage: 100MG 3X DAILY (250MG/5ML)
     Route: 041
     Dates: start: 20140530, end: 20140609
  2. ACICLOVIR [Concomitant]
     Dosage: 600 MG, 3X/DAY
     Route: 042
     Dates: start: 20140531, end: 20140602
  3. ADCAL-D3 [Concomitant]
     Dosage: UNK TWICE DAILY
     Route: 048
     Dates: start: 20140603
  4. ALENDRONIC ACID [Concomitant]
     Dosage: 70MG WEEKLY PRE-ADMISSION
     Route: 048
  5. AMOXICILLIN [Concomitant]
     Dosage: 2 G, EVERY 4 HRS
     Route: 042
     Dates: start: 20140531, end: 20140602
  6. CEFOTAXIME [Concomitant]
     Dosage: 2 G, 3X/DAY
     Route: 042
     Dates: start: 20140531, end: 20140602
  7. CYCLIZINE [Concomitant]
     Dosage: 50 MG, 3X/DAY
     Route: 048
     Dates: start: 20140605
  8. LATANOPROST [Concomitant]
     Dosage: LEFT EYE, TWICE DAILY
  9. TIMOLOL [Concomitant]
     Dosage: LEFT EYE, TWICE DAILY
  10. LISINOPRIL [Concomitant]
     Dosage: 10 MG, 1X/DAY
     Route: 048
     Dates: start: 20140603
  11. NIFEDIPINE [Concomitant]
     Dosage: 10 MG, 2X/DAY
     Route: 048
     Dates: start: 20140606
  12. OMEPRAZOLE [Concomitant]
     Dosage: 20 MG, 1X/DAY
     Route: 048
     Dates: start: 20140602
  13. PARACETAMOL [Concomitant]
     Dosage: 500 MG, UNK
  14. SENNA [Concomitant]
     Dosage: 7.5 MG, 1X/DAY
     Route: 048
     Dates: start: 20140605
  15. SIMVASTATIN [Concomitant]
     Dosage: 20 MG, 1X/DAY NIGHT
     Route: 048
  16. PREDNISOLONE [Concomitant]
     Dosage: 2.5 MG, 1X/DAY
     Route: 048
     Dates: start: 20140604

REACTIONS (4)
  - Purple glove syndrome [Not Recovered/Not Resolved]
  - Skin necrosis [Not Recovered/Not Resolved]
  - Injection site reaction [Not Recovered/Not Resolved]
  - Malaise [Not Recovered/Not Resolved]
